FAERS Safety Report 17310768 (Version 1)
Quarter: 2020Q1

REPORT INFORMATION
  Report Type: Spontaneous
  Country: US (occurrence: US)
  Receive Date: 20200107
  Receipt Date: 20200107
  Transmission Date: 20200409
  Serious: No
  Sender: FDA-Public Use
  Company Number: None

PATIENT
  Age: 74 Year
  Sex: Female

DRUGS (1)
  1. REPATHA [Suspect]
     Active Substance: EVOLOCUMAB
     Dosage: ?          OTHER FREQUENCY:OTHER;?
     Route: 058
     Dates: start: 201902

REACTIONS (6)
  - Myalgia [None]
  - Asthenia [None]
  - Back pain [None]
  - Hyperhidrosis [None]
  - Rhinorrhoea [None]
  - Sinus congestion [None]

NARRATIVE: CASE EVENT DATE: 20200107
